FAERS Safety Report 9001497 (Version 1)
Quarter: 2013Q1

REPORT INFORMATION
  Report Type: Spontaneous
  Country: US (occurrence: US)
  Receive Date: 20130107
  Receipt Date: 20130107
  Transmission Date: 20140127
  Serious: No
  Sender: FDA-Public Use
  Company Number: US-ASTRAZENECA-2012SE95662

PATIENT
  Sex: Female

DRUGS (3)
  1. SYMBICORT PMDI [Suspect]
     Route: 055
  2. XOEPENEX [Concomitant]
  3. SPIRIVA [Concomitant]

REACTIONS (4)
  - Visual impairment [Unknown]
  - Tremor [Unknown]
  - Dizziness [Unknown]
  - Intentional drug misuse [Unknown]
